FAERS Safety Report 5474979-3 (Version None)
Quarter: 2007Q4

REPORT INFORMATION
  Report Type: 
  Country: None (occurrence: None)
  Receive Date: 20071002
  Receipt Date: 20070926
  Transmission Date: 20080405
  Serious: Yes (Other)
  Sender: FDA-Public Use
  Company Number: GBWYE388827SEP07

PATIENT
  Sex: Female

DRUGS (1)
  1. CONJUGATED ESTROGENS [Suspect]
     Dosage: UNKNOWN

REACTIONS (1)
  - ENDOMETRIAL NEOPLASM [None]
